FAERS Safety Report 18392201 (Version 6)
Quarter: 2021Q1

REPORT INFORMATION
  Report Type: Spontaneous
  Country: ES (occurrence: ES)
  Receive Date: 20201016
  Receipt Date: 20210324
  Transmission Date: 20210419
  Serious: Yes (Hospitalization, Other)
  Sender: FDA-Public Use
  Company Number: ES-VELOXIS PHARMACEUTICALS-2019VELES-000558

PATIENT
  Age: 81 Year
  Sex: Female

DRUGS (11)
  1. ZINPLAVA [Suspect]
     Active Substance: BEZLOTOXUMAB
     Indication: CLOSTRIDIUM DIFFICILE INFECTION
     Dosage: 700 MG, UNKNOWN FREQ.
     Route: 065
     Dates: start: 20190321
  2. SIROLIMUS. [Suspect]
     Active Substance: SIROLIMUS
     Indication: PRODUCT USED FOR UNKNOWN INDICATION
     Dosage: UNK UNK, UNKNOWN FREQ.
     Route: 065
  3. OMEPRAZOLE. [Suspect]
     Active Substance: OMEPRAZOLE
     Indication: PRODUCT USED FOR UNKNOWN INDICATION
     Dosage: UNK UNK, UNKNOWN FREQ.
     Route: 065
  4. ERTAPENEM SODIUM [Suspect]
     Active Substance: ERTAPENEM SODIUM
     Indication: ESCHERICHIA INFECTION
     Dosage: UNK,UNK, UNKNOWN FREQ.; INDICATION: KLEBSIELLA INFECTION, ESCHERICHIA INFECTION
     Route: 065
     Dates: start: 20181225, end: 2019
  5. ERTAPENEM SODIUM [Suspect]
     Active Substance: ERTAPENEM SODIUM
     Indication: RENAL GRAFT INFECTION
     Dosage: UNK UNK, UNKNOWN FREQ.
     Route: 065
     Dates: start: 201903
  6. FIDAXOMICIN [Suspect]
     Active Substance: FIDAXOMICIN
     Indication: CLOSTRIDIUM DIFFICILE INFECTION
     Dosage: UNK, UNKNOWN FREQ.
     Route: 065
     Dates: start: 201901
  7. VANCOMYCIN [Suspect]
     Active Substance: VANCOMYCIN
     Indication: CLOSTRIDIUM DIFFICILE INFECTION
     Dosage: UNK UNK, UNKNOWN FREQ.
     Route: 065
     Dates: start: 20190321
  8. PREDNISONE. [Suspect]
     Active Substance: PREDNISONE
     Indication: PRODUCT USED FOR UNKNOWN INDICATION
     Dosage: UNK UNK, UNKNOWN FREQ.
     Route: 065
  9. ERTAPENEM SODIUM [Suspect]
     Active Substance: ERTAPENEM SODIUM
     Indication: KLEBSIELLA INFECTION
     Dosage: UNK
     Route: 065
  10. ENVARSUS XR [Suspect]
     Active Substance: TACROLIMUS
     Indication: CLOSTRIDIUM DIFFICILE INFECTION
     Dosage: UNK UNK, UNKNOWN FREQ.
     Route: 065
  11. ENVARSUS XR [Suspect]
     Active Substance: TACROLIMUS
     Dosage: UNK UNK, UNKNOWN FREQ.
     Route: 065

REACTIONS (12)
  - Escherichia test positive [Unknown]
  - Urinary tract infection pseudomonal [Unknown]
  - Product use in unapproved indication [Unknown]
  - Clostridium difficile infection [Unknown]
  - Avian influenza [Unknown]
  - Adenovirus infection [Unknown]
  - Pyrexia [Unknown]
  - Drug ineffective [Unknown]
  - Clostridium difficile infection [Unknown]
  - Escherichia bacteraemia [Unknown]
  - Klebsiella infection [Unknown]
  - Renal graft infection [Unknown]

NARRATIVE: CASE EVENT DATE: 20181225
